FAERS Safety Report 20535059 (Version 1)
Quarter: 2022Q1

REPORT INFORMATION
  Report Type: Spontaneous
  Country: FR (occurrence: FR)
  Receive Date: 20220302
  Receipt Date: 20220302
  Transmission Date: 20220423
  Serious: Yes (Hospitalization)
  Sender: FDA-Public Use
  Company Number: None

PATIENT
  Age: 82 Year
  Sex: Male
  Weight: 77 kg

DRUGS (6)
  1. ACYCLOVIR [Suspect]
     Active Substance: ACYCLOVIR
     Indication: Herpes zoster meningoencephalitis
     Dosage: 2310 MG
     Route: 042
     Dates: start: 20220118
  2. FUROSEMIDE [Suspect]
     Active Substance: FUROSEMIDE
     Indication: Hypertension
     Dosage: 80 MG, THERAPY START DATE: ASKU
     Route: 048
     Dates: end: 20220119
  3. AMOXICILLIN [Suspect]
     Active Substance: AMOXICILLIN
     Indication: Herpes zoster meningoencephalitis
     Dosage: 15 G
     Route: 042
     Dates: start: 20220118, end: 20220120
  4. CEFOTAXIME SODIUM [Suspect]
     Active Substance: CEFOTAXIME SODIUM
     Indication: Herpes zoster meningoencephalitis
     Dosage: 15 GRAM
     Route: 042
     Dates: start: 20220118, end: 20220120
  5. IOBITRIDOL [Suspect]
     Active Substance: IOBITRIDOL
     Indication: Computerised tomogram head
     Dosage: 350 (350 MG IODINE / ML), UNIT DOSE: 80 ML
     Route: 042
     Dates: start: 20220117, end: 20220117
  6. VALACYCLOVIR HYDROCHLORIDE [Concomitant]
     Active Substance: VALACYCLOVIR HYDROCHLORIDE
     Dosage: 2 G, THERAPY START DATE: ASKU
     Route: 048
     Dates: end: 20220118

REACTIONS (1)
  - Acute kidney injury [Not Recovered/Not Resolved]

NARRATIVE: CASE EVENT DATE: 20220119
